FAERS Safety Report 10213558 (Version 1)
Quarter: 2014Q2

REPORT INFORMATION
  Report Type: Spontaneous
  Country: US (occurrence: US)
  Receive Date: 20140603
  Receipt Date: 20140603
  Transmission Date: 20141212
  Serious: Yes (Hospitalization, Other)
  Sender: FDA-Public Use
  Company Number: US-ELI_LILLY_AND_COMPANY-US201405007550

PATIENT
  Age: 66 Year
  Sex: Male

DRUGS (5)
  1. HUMULIN 30% REGULAR, 70% NPH [Suspect]
     Indication: TYPE 1 DIABETES MELLITUS
     Dosage: UNK
     Route: 065
     Dates: start: 199304
  2. HUMULIN 30% REGULAR, 70% NPH [Suspect]
     Dosage: 30 U, EACH MORNING
     Route: 065
     Dates: start: 2007
  3. HUMULIN 30% REGULAR, 70% NPH [Suspect]
     Dosage: 20 U, EACH EVENING
     Route: 065
     Dates: start: 2007
  4. LISINOPRIL [Concomitant]
     Dosage: 40 MG, UNK
  5. PRAVASTATIN SODIUM [Concomitant]
     Dosage: 40 MG, UNK

REACTIONS (12)
  - Hyperglycaemia [Unknown]
  - Blindness unilateral [Not Recovered/Not Resolved]
  - Loss of consciousness [Unknown]
  - Blood glucose increased [Not Recovered/Not Resolved]
  - Halo vision [Unknown]
  - Vitreous floaters [Unknown]
  - Skin ulcer [Not Recovered/Not Resolved]
  - Impaired healing [Not Recovered/Not Resolved]
  - Visual acuity reduced [Recovering/Resolving]
  - Astigmatism [Unknown]
  - Drug ineffective [Unknown]
  - Incorrect dose administered [Unknown]
